FAERS Safety Report 6306310-5 (Version None)
Quarter: 2009Q3

REPORT INFORMATION
  Report Type: 
  Country: None (occurrence: None)
  Receive Date: 20090812
  Receipt Date: 20090727
  Transmission Date: 20100115
  Serious: Yes (Death)
  Sender: FDA-Public Use
  Company Number: PHHY2009JP31981

PATIENT
  Sex: Male

DRUGS (18)
  1. AMN107 AMN+CAP [Suspect]
     Indication: CHRONIC MYELOID LEUKAEMIA
     Dosage: 400MG DAILY
     Route: 048
     Dates: start: 20090424, end: 20090501
  2. AMN107 AMN+CAP [Suspect]
     Dosage: 400MG DAILY
     Route: 048
     Dates: start: 20090516, end: 20090522
  3. AMN107 AMN+CAP [Suspect]
     Dosage: 400MG DAILY
     Route: 048
     Dates: start: 20090606, end: 20090622
  4. MYSLEE [Concomitant]
     Dosage: UNK
     Route: 048
     Dates: start: 20090325, end: 20090429
  5. LENDORMIN [Concomitant]
     Dosage: UNK
     Route: 048
     Dates: start: 20090325
  6. CLARITH [Concomitant]
     Dosage: UNK
     Route: 048
     Dates: start: 20090325, end: 20090423
  7. GENINAX [Concomitant]
  8. PURSENNID [Concomitant]
     Dosage: UNK
     Route: 048
     Dates: start: 20090325, end: 20090423
  9. PHELLOBERIN [Concomitant]
     Dosage: UNK
     Route: 048
     Dates: start: 20090325
  10. ENTERONON R [Concomitant]
     Dosage: UNK
     Route: 048
     Dates: start: 19920325, end: 20090423
  11. BIOFERMIN [Concomitant]
     Dosage: 3 DF, UNK
     Route: 048
  12. SAWACILLIN [Concomitant]
     Dosage: 750 MG, UNK
     Route: 048
  13. ASPARA K [Concomitant]
     Dosage: 900 MG, UNK
     Route: 048
  14. NIFLAN [Concomitant]
     Dosage: 3 DF, UNK
     Route: 048
     Dates: start: 20090424
  15. COLONEL [Concomitant]
     Dosage: 3.6 G, UNK
     Route: 048
     Dates: start: 20090617, end: 20090623
  16. CEREKINON [Concomitant]
     Dosage: 300 MG, UNK
     Route: 048
     Dates: start: 20090617, end: 20090623
  17. PANSPORIN [Concomitant]
     Dosage: 2 G, UNK
     Route: 041
     Dates: start: 20090622, end: 20090624
  18. PANSPORIN [Concomitant]
     Dosage: UNK

REACTIONS (5)
  - BLOOD GLUCOSE INCREASED [None]
  - BRONCHITIS [None]
  - ELECTROCARDIOGRAM QT PROLONGED [None]
  - EOSINOPHIL COUNT INCREASED [None]
  - PNEUMONIA [None]
